FAERS Safety Report 9511512 (Version 1)
Quarter: 2013Q1

REPORT INFORMATION
  Report Type: Spontaneous
  Country: US (occurrence: None)
  Receive Date: 20130305
  Receipt Date: 20130305
  Transmission Date: 20140127
  Serious: Yes (Other)
  Sender: FDA-Public Use
  Company Number: 163-21880-12021452

PATIENT
  Age: 61 Year
  Sex: Female

DRUGS (8)
  1. REVLIMID [Suspect]
     Indication: PLASMA CELL MYELOMA
     Dosage: 25 MG, 1 IN 1 D, PO?
     Route: 048
     Dates: start: 200908
  2. AMLODIPINE (AMLODIPINE) (UNKNOWN) [Concomitant]
  3. LISINOPRIL (LISINOPRIL) (UNKNOWN) [Concomitant]
  4. PAROXETINE (PAROXETINE) (UNKNOWN) (PAROXETINE) [Concomitant]
  5. THYROXINE (LEVOTHYROXINE SODIUM) (UNKNOWN) [Concomitant]
  6. OMEPRAZOLE (OMPEPRAZOLE) (UNKNOWN) [Concomitant]
  7. NAPROXEN (NAPROXEN) (UNKNOWN)? [Concomitant]
  8. BONIVA (IBANDRONATE SODIUM) (UNKNOWN) [Concomitant]

REACTIONS (3)
  - Swelling face [None]
  - Rash [None]
  - Dyspepsia [None]
